FAERS Safety Report 8084427-5 (Version None)
Quarter: 2012Q1

REPORT INFORMATION
  Report Type: 
  Country: None (occurrence: None)
  Receive Date: 20120128
  Receipt Date: 20110325
  Transmission Date: 20120608
  Serious: No
  Sender: FDA-Public Use
  Company Number: US-ABBOTT-11P-163-0714348-00

PATIENT
  Sex: Female
  Weight: 49.94 kg

DRUGS (2)
  1. HUMIRA [Suspect]
     Indication: CROHN'S DISEASE
     Dates: start: 20100701
  2. EXTRA STRENGHT TYLENOL [Concomitant]
     Indication: BACK PAIN

REACTIONS (3)
  - ALOPECIA [None]
  - WEIGHT INCREASED [None]
  - ABDOMINAL DISTENSION [None]
